FAERS Safety Report 7509967-6 (Version None)
Quarter: 2011Q2

REPORT INFORMATION
  Report Type: 
  Country: None (occurrence: None)
  Receive Date: 20110527
  Receipt Date: 20110414
  Transmission Date: 20111010
  Serious: Yes (Hospitalization)
  Sender: FDA-Public Use
  Company Number: DE-BAYER-2011-025654

PATIENT
  Age: 49 Year
  Sex: Female
  Weight: 58 kg

DRUGS (5)
  1. AVELOX [Suspect]
     Indication: COUGH
     Dosage: UNK UNK, ONCE
     Route: 048
     Dates: start: 20110321, end: 20110321
  2. VENTOLAIR [Concomitant]
     Indication: TRACHEAL INFLAMMATION
  3. VENTOLAIR [Concomitant]
     Indication: COUGH
  4. AVELOX [Suspect]
     Indication: TRACHEAL INFLAMMATION
  5. PARACODIN [DIHYDROCODEINE] [Concomitant]
     Indication: COUGH

REACTIONS (12)
  - DIZZINESS [None]
  - COLD SWEAT [None]
  - OBSTRUCTIVE AIRWAYS DISORDER [None]
  - DYSPNOEA [None]
  - ANAPHYLACTIC REACTION [None]
  - NAUSEA [None]
  - HYPOAESTHESIA [None]
  - HEART RATE INCREASED [None]
  - PANIC REACTION [None]
  - OROPHARYNGEAL DISCOMFORT [None]
  - BLOOD PRESSURE INCREASED [None]
  - RESPIRATORY DISORDER [None]
